FAERS Safety Report 15178209 (Version 2)
Quarter: 2019Q1

REPORT INFORMATION
  Report Type: Spontaneous
  Country: SE (occurrence: SE)
  Receive Date: 20180721
  Receipt Date: 20190227
  Transmission Date: 20190417
  Serious: Yes (Life-Threatening, Hospitalization, Other)
  Sender: FDA-Public Use
  Company Number: SE-AUROBINDO-AUR-APL-2018-035993

PATIENT

DRUGS (2)
  1. FLUCLOXACILLIN [Suspect]
     Active Substance: FLUCLOXACILLIN
     Indication: GROIN INFECTION
     Dosage: UNK
     Route: 065
  2. METFORMIN [Suspect]
     Active Substance: METFORMIN HYDROCHLORIDE
     Indication: TYPE 2 DIABETES MELLITUS
     Dosage: LOW-DOSE
     Route: 065

REACTIONS (6)
  - Septic shock [Unknown]
  - Tachycardia [Unknown]
  - Hypotension [Unknown]
  - Hypotonia [Unknown]
  - Diabetic ketoacidosis [Recovered/Resolved]
  - Drug ineffective [Unknown]
